FAERS Safety Report 9837684 (Version 2)
Quarter: 2014Q1

REPORT INFORMATION
  Report Type: Spontaneous
  Country: IT (occurrence: IT)
  Receive Date: 20140123
  Receipt Date: 20140320
  Transmission Date: 20141002
  Serious: Yes (Other)
  Sender: FDA-Public Use
  Company Number: IT-SA-2014SA008205

PATIENT
  Age: 16 Year
  Sex: Female

DRUGS (1)
  1. MYOZYME [Suspect]
     Indication: GLYCOGEN STORAGE DISEASE TYPE II
     Dosage: FREQUENCY : EVERY 10 DAYS
     Route: 042
     Dates: end: 201312

REACTIONS (2)
  - Device related infection [Recovered/Resolved]
  - Chills [Recovered/Resolved]
